FAERS Safety Report 7967323-0 (Version None)
Quarter: 2011Q4

REPORT INFORMATION
  Report Type: 
  Country: None (occurrence: None)
  Receive Date: 20111209
  Receipt Date: 20111205
  Transmission Date: 20120403
  Serious: Yes (Other)
  Sender: FDA-Public Use
  Company Number: IT-ROXANE LABORATORIES, INC.-2011-RO-01744RO

PATIENT
  Age: 59 Year
  Sex: Male

DRUGS (6)
  1. METHYLPREDNISOLONE [Suspect]
     Indication: GLOMERULONEPHRITIS MEMBRANOPROLIFERATIVE
     Dosage: 1 G
  2. CYCLOSPORINE [Concomitant]
     Indication: CRYOGLOBULINAEMIA
  3. CYCLOPHOSPHAMIDE [Suspect]
     Indication: GLOMERULONEPHRITIS MEMBRANOPROLIFERATIVE
     Route: 048
  4. PREDNISONE [Suspect]
     Indication: GLOMERULONEPHRITIS MEMBRANOPROLIFERATIVE
     Route: 048
  5. CORTICOSTEROIDS [Concomitant]
     Indication: CRYOGLOBULINAEMIA
  6. RITUXIMAB [Concomitant]
     Indication: CRYOGLOBULINAEMIA

REACTIONS (1)
  - THROMBOCYTOPENIA [None]
